FAERS Safety Report 15743276 (Version 1)
Quarter: 2018Q4

REPORT INFORMATION
  Report Type: Spontaneous
  Country: DE (occurrence: DE)
  Receive Date: 20181220
  Receipt Date: 20181220
  Transmission Date: 20190205
  Serious: Yes (Other)
  Sender: FDA-Public Use
  Company Number: DE-COLGATE PALMOLIVE COMPANY-20181203021

PATIENT
  Age: 78 Year
  Sex: Male
  Weight: 75 kg

DRUGS (3)
  1. LOSARTAN 100 - 1 A PHARMA [Concomitant]
     Route: 048
  2. MERIDOL? MED CHX 0,2 %, LOSUNG ZUR ANWENDUNG IN DER MUNDHOHLE [Suspect]
     Active Substance: CHLORHEXIDINE GLUCONATE
     Indication: INFECTION PROPHYLAXIS
     Dosage: 10 MILLILITER, 12 HOURS
     Route: 048
     Dates: start: 20181015, end: 20181102
  3. LERCANIDIPIN OMNIAPHARM 20 MG FILMTABLETTEN [Concomitant]
     Route: 048

REACTIONS (1)
  - Sudden hearing loss [Unknown]

NARRATIVE: CASE EVENT DATE: 20181105
